FAERS Safety Report 15699765 (Version 2)
Quarter: 2018Q4

REPORT INFORMATION
  Report Type: Spontaneous
  Country: JP (occurrence: JP)
  Receive Date: 20181207
  Receipt Date: 20181220
  Transmission Date: 20190205
  Serious: Yes (Hospitalization, Disabling)
  Sender: FDA-Public Use
  Company Number: JP-JNJFOC-20181202955

PATIENT
  Age: 65 Year
  Sex: Female
  Weight: 62 kg

DRUGS (11)
  1. MAINTATE [Concomitant]
     Active Substance: BISOPROLOL FUMARATE
     Route: 048
  2. SENNOSIDE [Concomitant]
     Active Substance: SENNOSIDES
     Route: 065
  3. AMITIZA [Concomitant]
     Active Substance: LUBIPROSTONE
     Route: 065
  4. XARELTO [Suspect]
     Active Substance: RIVAROXABAN
     Indication: ATRIAL FIBRILLATION
     Route: 048
     Dates: end: 20181126
  5. XARELTO [Suspect]
     Active Substance: RIVAROXABAN
     Indication: THROMBOSIS PROPHYLAXIS
     Route: 048
     Dates: end: 20181126
  6. RABEPRAZOLE NA [Concomitant]
     Active Substance: RABEPRAZOLE SODIUM
     Route: 048
  7. XARELTO [Suspect]
     Active Substance: RIVAROXABAN
     Indication: CEREBROVASCULAR ACCIDENT PROPHYLAXIS
     Route: 048
     Dates: end: 20181126
  8. INSULIN [Concomitant]
     Active Substance: INSULIN NOS
     Route: 058
  9. ETODOLAC. [Concomitant]
     Active Substance: ETODOLAC
     Route: 065
  10. REBAMIPIDE [Concomitant]
     Active Substance: REBAMIPIDE
     Route: 065
  11. HUMALOG [Concomitant]
     Active Substance: INSULIN LISPRO
     Route: 058

REACTIONS (2)
  - Hemiplegia [Not Recovered/Not Resolved]
  - Cerebral infarction [Recovered/Resolved with Sequelae]

NARRATIVE: CASE EVENT DATE: 20181124
